FAERS Safety Report 19433524 (Version 3)
Quarter: 2021Q3

REPORT INFORMATION
  Report Type: Report from Study
  Country: None (occurrence: US)
  Receive Date: 20210618
  Receipt Date: 20210705
  Transmission Date: 20211014
  Serious: Yes (Hospitalization, Other)
  Sender: FDA-Public Use
  Company Number: US-ABBVIE-21K-163-3949906-00

PATIENT
  Sex: Female
  Weight: 99.88 kg

DRUGS (1)
  1. CREON [Suspect]
     Active Substance: PANCRELIPASE AMYLASE\PANCRELIPASE LIPASE\PANCRELIPASE PROTEASE
     Indication: PANCREATIC FAILURE
     Dosage: 4 CAPSULE EACH MEALS AND 1 EACH SNACK.
     Route: 048
     Dates: start: 20210301

REACTIONS (5)
  - Osteoarthritis [Recovering/Resolving]
  - Muscle spasms [Unknown]
  - Abdominal distension [Unknown]
  - Cognitive disorder [Unknown]
  - Arthritis [Recovering/Resolving]

NARRATIVE: CASE EVENT DATE: 2021
